FAERS Safety Report 18405926 (Version 1)
Quarter: 2020Q4

REPORT INFORMATION
  Report Type: Spontaneous
  Country: US (occurrence: US)
  Receive Date: 20201020
  Receipt Date: 20201020
  Transmission Date: 20210114
  Serious: No
  Sender: FDA-Public Use
  Company Number: US-GALDERMA-US2020040370

PATIENT
  Age: 15 Year
  Sex: Male

DRUGS (2)
  1. AKLIEF [Suspect]
     Active Substance: TRIFAROTENE
     Indication: ACNE
     Dosage: 0.005%
     Route: 061
     Dates: start: 20200828
  2. SULFACETAMIDE SODIUM WITH SULFUR [Concomitant]
     Indication: PRODUCT USED FOR UNKNOWN INDICATION
     Route: 065

REACTIONS (4)
  - Application site erythema [Not Recovered/Not Resolved]
  - Skin burning sensation [Not Recovered/Not Resolved]
  - Seborrhoea [Not Recovered/Not Resolved]
  - Application site exfoliation [Not Recovered/Not Resolved]

NARRATIVE: CASE EVENT DATE: 20200829
